FAERS Safety Report 19279142 (Version 1)
Quarter: 2021Q2

REPORT INFORMATION
  Report Type: Spontaneous
  Country: JP (occurrence: JP)
  Receive Date: 20210520
  Receipt Date: 20210520
  Transmission Date: 20210717
  Serious: Yes (Hospitalization)
  Sender: FDA-Public Use
  Company Number: NVSJ2021JP007437

PATIENT
  Age: 70 Year
  Sex: Male

DRUGS (2)
  1. CYCLOSPORINE. [Suspect]
     Active Substance: CYCLOSPORINE
     Indication: MESENTERIC PANNICULITIS
     Dosage: UNK
     Route: 065
     Dates: start: 201904
  2. PREDNISOLONE. [Concomitant]
     Active Substance: PREDNISOLONE
     Indication: MESENTERIC PANNICULITIS
     Dosage: 30 MG/DAY
     Route: 065
     Dates: start: 201810

REACTIONS (9)
  - Pancytopenia [Unknown]
  - Product use in unapproved indication [Unknown]
  - Atypical mycobacterial infection [Unknown]
  - White blood cell count decreased [Unknown]
  - Serum ferritin increased [Unknown]
  - Inflammation [Unknown]
  - Haemophagocytic lymphohistiocytosis [Unknown]
  - Pyrexia [Recovering/Resolving]
  - Renal impairment [Unknown]

NARRATIVE: CASE EVENT DATE: 201904
